FAERS Safety Report 20442937 (Version 1)
Quarter: 2022Q1

REPORT INFORMATION
  Report Type: Spontaneous
  Country: US (occurrence: None)
  Receive Date: 20220207
  Receipt Date: 20220207
  Transmission Date: 20220423
  Serious: Yes (Hospitalization)
  Sender: FDA-Public Use
  Company Number: None

PATIENT
  Sex: Female

DRUGS (1)
  1. OTEZLA [Suspect]
     Active Substance: APREMILAST
     Indication: Psoriatic arthropathy
     Dosage: FREQUENCY : TWICE A DAY;?
     Route: 048

REACTIONS (8)
  - Psoriatic arthropathy [None]
  - Pruritus [None]
  - Burning sensation [None]
  - Pain [None]
  - Stress [None]
  - Atrial fibrillation [None]
  - Pneumonia [None]
  - Viral infection [None]
